FAERS Safety Report 5668431-X (Version None)
Quarter: 2008Q1

REPORT INFORMATION
  Report Type: 
  Country: None (occurrence: None)
  Receive Date: 20080312
  Receipt Date: 20080303
  Transmission Date: 20080703
  Serious: Yes (Hospitalization)
  Sender: FDA-Public Use
  Company Number: ABTNP-08-0072

PATIENT
  Age: 75 Year
  Sex: Female

DRUGS (1)
  1. ABRAXANE [Suspect]
     Indication: BREAST CANCER
     Dosage: (100 MQ/M2,EVERY WEEK X 3; OFF WEEK 4);  2 CYCLES RECEIVED

REACTIONS (2)
  - DIVERTICULITIS [None]
  - FEBRILE NEUTROPENIA [None]
